FAERS Safety Report 6708285-3 (Version None)
Quarter: 2010Q2

REPORT INFORMATION
  Report Type: 
  Country: None (occurrence: None)
  Receive Date: 20100503
  Receipt Date: 20090325
  Transmission Date: 20101027
  Serious: No
  Sender: FDA-Public Use
  Company Number: US-ASTRAZENECA-2009UW07466

PATIENT
  Age: 39 Year
  Sex: Female
  Weight: 79.8 kg

DRUGS (5)
  1. NEXIUM [Suspect]
     Route: 048
  2. NEXIUM [Suspect]
     Route: 048
  3. LEVOXYL [Concomitant]
  4. LABETALOL HCL [Concomitant]
  5. ZOFRAN [Concomitant]

REACTIONS (4)
  - CONSTIPATION [None]
  - DRUG EXPOSURE DURING PREGNANCY [None]
  - DYSPEPSIA [None]
  - ERUCTATION [None]
